FAERS Safety Report 5392767-3 (Version None)
Quarter: 2007Q3

REPORT INFORMATION
  Report Type: 
  Country: None (occurrence: None)
  Receive Date: 20070720
  Receipt Date: 20070710
  Transmission Date: 20080115
  Serious: Yes (Hospitalization, Other)
  Sender: FDA-Public Use
  Company Number: US-PFIZER INC-2007045994

PATIENT
  Sex: Male
  Weight: 108 kg

DRUGS (12)
  1. CHANTIX [Suspect]
     Indication: EX-SMOKER
  2. ALLEGRA [Concomitant]
  3. SALBUTAMOL [Concomitant]
     Route: 055
  4. MUCINEX [Concomitant]
  5. SIMVASTATIN [Concomitant]
  6. ACETYLSALICYLIC ACID SRT [Concomitant]
  7. COREG [Concomitant]
  8. QUINAPRIL [Concomitant]
  9. CELEBREX [Concomitant]
  10. TUSSIN DM [Concomitant]
  11. ADVAIR DISKUS 100/50 [Concomitant]
  12. NASACORT [Concomitant]
     Route: 045

REACTIONS (2)
  - DEHYDRATION [None]
  - DIARRHOEA [None]
